FAERS Safety Report 21191594 (Version 1)
Quarter: 2022Q3

REPORT INFORMATION
  Report Type: Spontaneous
  Country: US (occurrence: US)
  Receive Date: 20220809
  Receipt Date: 20220809
  Transmission Date: 20221027
  Serious: No
  Sender: FDA-Public Use
  Company Number: US-JOURNEY MEDICAL CORPORATION-2022JNY00635

PATIENT
  Sex: Female
  Weight: 50.802 kg

DRUGS (7)
  1. AMZEEQ [Suspect]
     Active Substance: MINOCYCLINE HYDROCHLORIDE
     Indication: Acne
     Dosage: APPLIED TOPICALLY 5X/WEEK FOR ONE HOUR (FOLLOWED BY DIFFERIN)
     Route: 061
     Dates: start: 202108, end: 2022
  2. AMZEEQ [Suspect]
     Active Substance: MINOCYCLINE HYDROCHLORIDE
     Dosage: APPLIED TOPICALLY 3X/WEEK FOR ONE HOUR (FOLLOWED BY DIFFERIN)
     Route: 061
     Dates: start: 2022
  3. TITANIUM DIOXIDE\ZINC OXIDE [Suspect]
     Active Substance: TITANIUM DIOXIDE\ZINC OXIDE
     Dosage: UNK
     Dates: end: 2022
  4. TITANIUM DIOXIDE\ZINC OXIDE [Suspect]
     Active Substance: TITANIUM DIOXIDE\ZINC OXIDE
     Dosage: UNK
     Dates: end: 2022
  5. DIFFERIN [Concomitant]
     Active Substance: ADAPALENE
     Dosage: APPLY 5X/WEEK, LEAVE ON OVERNIGHT (AFTER AMZEEQ)
     Route: 061
     Dates: end: 2022
  6. DIFFERIN [Concomitant]
     Active Substance: ADAPALENE
     Dosage: APPLY 3X/WEEK, LEAVE ON OVERNIGHT (AFTER AMZEEQ)
     Route: 061
     Dates: start: 2022
  7. DOVE SOAP [Concomitant]

REACTIONS (7)
  - Blister [Not Recovered/Not Resolved]
  - Urticaria [Not Recovered/Not Resolved]
  - Eye swelling [Not Recovered/Not Resolved]
  - Sunburn [Not Recovered/Not Resolved]
  - Erythema [Not Recovered/Not Resolved]
  - Dry skin [Not Recovered/Not Resolved]
  - Skin exfoliation [Not Recovered/Not Resolved]

NARRATIVE: CASE EVENT DATE: 20220101
